FAERS Safety Report 6189984-1 (Version None)
Quarter: 2009Q2

REPORT INFORMATION
  Report Type: 
  Country: None (occurrence: None)
  Receive Date: 20090514
  Receipt Date: 20090511
  Transmission Date: 20091009
  Serious: Yes (Other)
  Sender: FDA-Public Use
  Company Number: US-ASTRAZENECA-2009UW11968

PATIENT
  Sex: Male

DRUGS (1)
  1. CRESTOR [Suspect]
     Dosage: DOSAGE CUT DOWN DRASTICALLY BECAUSE PATIENT CAN'T AFFORD MEDICATIONS
     Route: 048

REACTIONS (3)
  - CORONARY ARTERIAL STENT INSERTION [None]
  - INCORRECT DOSE ADMINISTERED [None]
  - MEDICAL DEVICE IMPLANTATION [None]
